FAERS Safety Report 23747867 (Version 1)
Quarter: 2024Q2

REPORT INFORMATION
  Report Type: Spontaneous
  Country: US (occurrence: None)
  Receive Date: 20240415
  Receipt Date: 20240415
  Transmission Date: 20240715
  Serious: No
  Sender: FDA-Public Use
  Company Number: None

PATIENT
  Age: 20 Day
  Sex: Male
  Weight: 2.13 kg

DRUGS (2)
  1. NIRSEVIMAB [Suspect]
     Active Substance: NIRSEVIMAB
     Dosage: FREQUENCY : ONCE;?
     Route: 030
     Dates: start: 20231129
  2. HEPATITIS B VIRUS VACCINE [Suspect]
     Active Substance: HEPATITIS B VIRUS VACCINE
     Dosage: OTHER FREQUENCY : ONCE;?
     Route: 030
     Dates: start: 20231129

REACTIONS (1)
  - Bradycardia [None]

NARRATIVE: CASE EVENT DATE: 20231130
